FAERS Safety Report 8613488 (Version 4)
Quarter: 2014Q1

REPORT INFORMATION
  Report Type: Spontaneous
  Country: US (occurrence: US)
  Receive Date: 20120614
  Receipt Date: 20140123
  Transmission Date: 20141002
  Serious: Yes (Disabling)
  Sender: FDA-Public Use
  Company Number: US-ASTRAZENECA-2012SE36156

PATIENT
  Age: 47 Year
  Sex: Male

DRUGS (20)
  1. NEXIUM [Suspect]
     Indication: GASTROOESOPHAGEAL REFLUX DISEASE
     Route: 048
     Dates: start: 2005, end: 2009
  2. NEXIUM [Suspect]
     Indication: GASTROOESOPHAGEAL REFLUX DISEASE
     Route: 048
     Dates: start: 20061206, end: 20100723
  3. BUDEPRION SR [Concomitant]
     Dates: start: 20061113
  4. LISINOPRIL [Concomitant]
     Dates: start: 20061113
  5. LISINOPRIL-HCTZ [Concomitant]
     Dosage: 20/12.5
     Dates: start: 20070108
  6. TRAZODONE [Concomitant]
     Dates: start: 20070215
  7. SINGULAIR [Concomitant]
  8. AMLODIPINE BESYLATE [Concomitant]
     Dates: start: 20070419
  9. VICOPROFEN [Concomitant]
     Dosage: 200/7.5
     Dates: start: 20011004
  10. CYCLOBENZAPRINE [Concomitant]
     Dates: start: 20011007
  11. NAPROXEN SODIUM [Concomitant]
     Dates: start: 20090221
  12. HYDROCODONE-APAP [Concomitant]
     Dosage: 5-500
     Dates: start: 20090221
  13. PROMETHAZINE [Concomitant]
     Dates: start: 20090303
  14. AMLODIPINE- BENAZEPRIL [Concomitant]
     Dosage: 10-20MG
     Dates: start: 20090505
  15. MUCINEX DM [Concomitant]
     Dosage: 600-30MG
     Dates: start: 20090505
  16. OMEPRAZOLE DR [Concomitant]
     Dates: start: 20100830
  17. BENZONATATE [Concomitant]
     Dates: start: 20101018
  18. BACLOFEN [Concomitant]
     Dates: start: 20101220
  19. SIMVASTATIN [Concomitant]
     Dates: start: 20110426
  20. MONTELUKAST SOD [Concomitant]
     Dates: start: 20120830

REACTIONS (5)
  - Greenstick fracture [Unknown]
  - Osteoporosis [Unknown]
  - Multiple fractures [Unknown]
  - Osteopenia [Unknown]
  - Fibula fracture [Unknown]
